FAERS Safety Report 9648069 (Version 4)
Quarter: 2013Q4

REPORT INFORMATION
  Report Type: Spontaneous
  Country: US (occurrence: US)
  Receive Date: 20131028
  Receipt Date: 20131204
  Transmission Date: 20140711
  Serious: No
  Sender: FDA-Public Use
  Company Number: US-PFIZER INC-2013304540

PATIENT
  Age: 43 Year
  Sex: Female
  Weight: 97.51 kg

DRUGS (8)
  1. LYRICA [Suspect]
     Indication: NEUROPATHY PERIPHERAL
     Dosage: 150 MG, 2X/DAY
     Route: 048
     Dates: start: 2011, end: 20131014
  2. LYRICA [Suspect]
     Indication: DIABETIC NEUROPATHY
  3. TYLENOL [Suspect]
     Indication: PAIN
     Dosage: UNK
     Dates: start: 201310
  4. METFORMIN [Concomitant]
     Indication: DIABETES MELLITUS
     Dosage: 500 MG, 2X/DAY
  5. METFORMIN [Concomitant]
     Dosage: 500 MG, 1X/DAY
  6. KOMBIGLYZE XR [Concomitant]
     Indication: DIABETES MELLITUS
     Dosage: 500 MG, DAILY
  7. LISINOPRIL W/HYDROCHLOROTHIAZIDE [Concomitant]
     Indication: HYPERTENSION
     Dosage: 12.5 MG, DAILY
  8. PLAVIX [Concomitant]
     Indication: POOR PERIPHERAL CIRCULATION
     Dosage: UNK

REACTIONS (3)
  - Burning sensation [Not Recovered/Not Resolved]
  - Pain [Not Recovered/Not Resolved]
  - Insomnia [Not Recovered/Not Resolved]
